FAERS Safety Report 12681915 (Version 3)
Quarter: 2017Q2

REPORT INFORMATION
  Report Type: Spontaneous
  Country: US (occurrence: US)
  Receive Date: 20160824
  Receipt Date: 20170411
  Transmission Date: 20170830
  Serious: No
  Sender: FDA-Public Use
  Company Number: US-ACTELION-A-US2015-129287

PATIENT
  Age: 72 Year
  Sex: Female
  Weight: 70.3 kg

DRUGS (1)
  1. TRACLEER [Suspect]
     Active Substance: BOSENTAN
     Indication: PULMONARY ARTERIAL HYPERTENSION
     Dosage: 125 MG, BID
     Route: 048
     Dates: start: 20071029

REACTIONS (12)
  - Secretion discharge [Unknown]
  - Insomnia [Unknown]
  - Headache [Unknown]
  - Hyperhidrosis [Unknown]
  - Viral upper respiratory tract infection [Unknown]
  - Bronchitis [Unknown]
  - Influenza [Unknown]
  - Dysphonia [Unknown]
  - Dizziness [Unknown]
  - Cough [Unknown]
  - Head discomfort [Unknown]
  - Nasal congestion [Unknown]
